FAERS Safety Report 9660525 (Version 1)
Quarter: 2013Q4

REPORT INFORMATION
  Report Type: Spontaneous
  Country: US (occurrence: US)
  Receive Date: 20131031
  Receipt Date: 20131031
  Transmission Date: 20140711
  Serious: Yes (Disabling)
  Sender: FDA-Public Use
  Company Number: US-B.I. PHARMACEUTICALS,INC./RIDGEFIELD-2013-BI-34585BP

PATIENT
  Sex: Female

DRUGS (6)
  1. MICARDIS HCT TABLETS [Suspect]
     Indication: HYPERTENSION
     Dosage: STRENGTH: 80 MG / 25 MG; DAILY DOSE: 80 MCG / 25 MG
     Route: 048
  2. SERTRALINE [Concomitant]
     Indication: SOMNOLENCE
     Dosage: 25 MG
     Route: 048
  3. AMLODIPINE [Concomitant]
     Indication: CARDIAC DISORDER
     Dosage: 5 MG
     Route: 048
  4. PATASSIUM CHOLORIDE [Concomitant]
     Indication: OEDEMA
     Dosage: 20 MG
     Route: 048
  5. ALPRAZOLAM [Concomitant]
     Indication: NERVOUSNESS
     Dosage: 0.75 MG
     Route: 048
  6. METOPROLOL ER SUCCINATE [Concomitant]
     Indication: HYPERTENSION
     Dosage: 25 MG
     Route: 048

REACTIONS (2)
  - Fatigue [Not Recovered/Not Resolved]
  - Cough [Not Recovered/Not Resolved]
